FAERS Safety Report 12469858 (Version 2)
Quarter: 2016Q2

REPORT INFORMATION
  Report Type: Report from Study
  Country: TW (occurrence: TW)
  Receive Date: 20160615
  Receipt Date: 20160629
  Transmission Date: 20160815
  Serious: Yes (Other)
  Sender: FDA-Public Use
  Company Number: TW-BEH-2016070317

PATIENT

DRUGS (1)
  1. HUMAN IMMUNOGLOBULIN IV BMW (GENERIC) [Suspect]
     Active Substance: HUMAN IMMUNOGLOBULIN G
     Indication: KAWASAKI^S DISEASE
     Route: 042

REACTIONS (1)
  - Drug ineffective [Unknown]
